FAERS Safety Report 9067646 (Version 1)
Quarter: 2013Q1

REPORT INFORMATION
  Report Type: Spontaneous
  Country: None (occurrence: US)
  Receive Date: 20130206
  Receipt Date: 20130206
  Transmission Date: 20140127
  Serious: No
  Sender: FDA-Public Use
  Company Number: US-TARO-2012P1048764

PATIENT
  Age: 64 Year
  Sex: Male
  Weight: 114.76 kg

DRUGS (7)
  1. KETOCONAZOLE [Suspect]
     Route: 061
     Dates: start: 20120604, end: 20120617
  2. KETOCONAZOLE [Suspect]
     Route: 048
     Dates: start: 20120616, end: 20120617
  3. METFORMIN [Concomitant]
  4. GLIPIZIDE [Concomitant]
  5. GEMFIBROZIL 600 MG [Concomitant]
  6. LISINOPRIL [Concomitant]
  7. AMLODIPINE 10 MG [Concomitant]

REACTIONS (7)
  - Hypersensitivity [Recovering/Resolving]
  - Erythema [Recovering/Resolving]
  - Swelling [Recovering/Resolving]
  - Secretion discharge [Recovering/Resolving]
  - Skin exfoliation [Recovering/Resolving]
  - Burning sensation [Recovering/Resolving]
  - Pruritus generalised [Not Recovered/Not Resolved]
